FAERS Safety Report 5978501-4 (Version None)
Quarter: 2008Q4

REPORT INFORMATION
  Report Type: 
  Country: None (occurrence: None)
  Receive Date: 20081204
  Receipt Date: 20080914
  Transmission Date: 20090506
  Serious: No
  Sender: FDA-Public Use
  Company Number: US-BAYER-200813792BCC

PATIENT
  Sex: Female
  Weight: 50 kg

DRUGS (1)
  1. MIDOL [Suspect]
     Indication: DYSMENORRHOEA
     Route: 048
     Dates: start: 20070801

REACTIONS (2)
  - MUSCLE SPASMS [None]
  - VOMITING [None]
